FAERS Safety Report 18873641 (Version 19)
Quarter: 2022Q4

REPORT INFORMATION
  Report Type: Spontaneous
  Country: GB (occurrence: GB)
  Receive Date: 20210210
  Receipt Date: 20221223
  Transmission Date: 20230113
  Serious: Yes (Hospitalization, Other)
  Sender: FDA-Public Use
  Company Number: None

PATIENT
  Age: 54 Year
  Sex: Female
  Weight: 63.5 kg

DRUGS (74)
  1. CARBOPLATIN [Suspect]
     Active Substance: CARBOPLATIN
     Indication: Neoplasm malignant
     Dosage: UNKNOWN
     Route: 065
  2. CARBOPLATIN [Suspect]
     Active Substance: CARBOPLATIN
     Indication: Non-small cell lung cancer
     Dosage: UNKNOWN
     Route: 065
  3. CARBOPLATIN [Suspect]
     Active Substance: CARBOPLATIN
     Indication: Non-small cell lung cancer metastatic
  4. ATEZOLIZUMAB [Suspect]
     Active Substance: ATEZOLIZUMAB
     Indication: Neoplasm malignant
     Route: 041
     Dates: start: 20200212, end: 20200415
  5. ATEZOLIZUMAB [Suspect]
     Active Substance: ATEZOLIZUMAB
     Indication: Non-small cell lung cancer
     Route: 041
     Dates: start: 20200513, end: 20200715
  6. ATEZOLIZUMAB [Suspect]
     Active Substance: ATEZOLIZUMAB
     Indication: Non-small cell lung cancer metastatic
     Route: 041
     Dates: start: 20200325
  7. ATEZOLIZUMAB [Suspect]
     Active Substance: ATEZOLIZUMAB
     Route: 041
     Dates: start: 20200916
  8. ATEZOLIZUMAB [Suspect]
     Active Substance: ATEZOLIZUMAB
     Route: 041
     Dates: start: 20200304
  9. ATEZOLIZUMAB [Suspect]
     Active Substance: ATEZOLIZUMAB
     Route: 041
     Dates: start: 20200624
  10. ATEZOLIZUMAB [Suspect]
     Active Substance: ATEZOLIZUMAB
     Route: 041
     Dates: start: 20200715
  11. ATEZOLIZUMAB [Suspect]
     Active Substance: ATEZOLIZUMAB
     Route: 041
     Dates: start: 20200805
  12. ATEZOLIZUMAB [Suspect]
     Active Substance: ATEZOLIZUMAB
     Route: 041
     Dates: start: 20200826
  13. ATEZOLIZUMAB [Suspect]
     Active Substance: ATEZOLIZUMAB
     Route: 041
     Dates: start: 20200603, end: 20200916
  14. ATEZOLIZUMAB [Suspect]
     Active Substance: ATEZOLIZUMAB
     Route: 041
     Dates: start: 20200204
  15. ATEZOLIZUMAB [Suspect]
     Active Substance: ATEZOLIZUMAB
     Route: 041
     Dates: start: 20200415
  16. ATEZOLIZUMAB [Suspect]
     Active Substance: ATEZOLIZUMAB
     Route: 041
     Dates: start: 20200312
  17. ATEZOLIZUMAB [Suspect]
     Active Substance: ATEZOLIZUMAB
     Route: 041
     Dates: start: 20200312
  18. ATEZOLIZUMAB [Suspect]
     Active Substance: ATEZOLIZUMAB
     Route: 041
     Dates: start: 20200916
  19. BEVACIZUMAB [Suspect]
     Active Substance: BEVACIZUMAB
     Indication: Neoplasm malignant
     Dosage: UNKNOWN
     Route: 041
  20. BEVACIZUMAB [Suspect]
     Active Substance: BEVACIZUMAB
     Indication: Non-small cell lung cancer
     Dosage: UNKNOWN
     Route: 041
     Dates: start: 20200304, end: 20200325
  21. BEVACIZUMAB [Suspect]
     Active Substance: BEVACIZUMAB
     Indication: Non-small cell lung cancer metastatic
     Dosage: UNKNOWN
     Route: 041
  22. ETOPOSIDE [Suspect]
     Active Substance: ETOPOSIDE
     Indication: Neoplasm malignant
     Dosage: UNKNOWN
     Route: 065
  23. ETOPOSIDE [Suspect]
     Active Substance: ETOPOSIDE
     Indication: Non-small cell lung cancer
     Dosage: UNKNOWN
     Route: 065
  24. ETOPOSIDE [Suspect]
     Active Substance: ETOPOSIDE
     Indication: Non-small cell lung cancer metastatic
  25. PACLITAXEL [Suspect]
     Active Substance: PACLITAXEL
     Indication: Neoplasm malignant
     Route: 065
     Dates: start: 20200325
  26. PACLITAXEL [Suspect]
     Active Substance: PACLITAXEL
     Indication: Non-small cell lung cancer
     Route: 065
     Dates: start: 20200325, end: 20200325
  27. PACLITAXEL [Suspect]
     Active Substance: PACLITAXEL
     Indication: Non-small cell lung cancer metastatic
     Dosage: UNKNOWN
     Route: 065
  28. PACLITAXEL [Suspect]
     Active Substance: PACLITAXEL
     Route: 042
  29. PROLIA [Suspect]
     Active Substance: DENOSUMAB
     Indication: Bone pain
     Dosage: UNKNOWN
     Route: 065
     Dates: start: 20200803
  30. PROLIA [Suspect]
     Active Substance: DENOSUMAB
     Indication: Non-small cell lung cancer metastatic
     Dosage: UNKNOWN
     Route: 065
  31. PROLIA [Suspect]
     Active Substance: DENOSUMAB
     Dosage: UNKNOWN
     Route: 065
     Dates: start: 20200803
  32. FAMOTIDINE [Suspect]
     Active Substance: FAMOTIDINE
     Indication: Product used for unknown indication
     Dosage: MOST RECENT DOSE PRIOR TO AE 12-FEB-2020
     Route: 065
     Dates: start: 20200212, end: 20200212
  33. FAMOTIDINE [Suspect]
     Active Substance: FAMOTIDINE
     Indication: Non-small cell lung cancer metastatic
     Route: 065
     Dates: start: 20200212, end: 20200212
  34. FILGRASTIM [Suspect]
     Active Substance: FILGRASTIM
     Indication: Product used for unknown indication
     Dosage: UNKNOWN
     Route: 065
     Dates: start: 20200512, end: 20200512
  35. FILGRASTIM [Suspect]
     Active Substance: FILGRASTIM
     Indication: Non-small cell lung cancer metastatic
     Dosage: UNKNOWN
     Route: 065
     Dates: start: 20200512, end: 20200515
  36. FILGRASTIM [Suspect]
     Active Substance: FILGRASTIM
     Indication: White blood cell count decreased
     Dosage: UNKNOWN
     Route: 065
     Dates: start: 20200512, end: 20200515
  37. FILGRASTIM [Suspect]
     Active Substance: FILGRASTIM
     Indication: Non-small cell lung cancer metastatic
     Dosage: UNKNOWN
     Route: 065
     Dates: start: 20200513, end: 20200515
  38. FILGRASTIM [Suspect]
     Active Substance: FILGRASTIM
     Indication: Non-small cell lung cancer
  39. ZARXIO [Suspect]
     Active Substance: FILGRASTIM-SNDZ
     Indication: White blood cell count decreased
     Dosage: UNKNOWN
     Route: 065
  40. PEGFILGRASTIM [Suspect]
     Active Substance: PEGFILGRASTIM
     Indication: Non-small cell lung cancer
     Dosage: UNKNOWN
     Route: 065
     Dates: start: 20200512
  41. PEGFILGRASTIM [Suspect]
     Active Substance: PEGFILGRASTIM
     Indication: White blood cell count decreased
  42. CHLORPHENIRAMINE MALEATE [Concomitant]
     Active Substance: CHLORPHENIRAMINE MALEATE
     Indication: Premedication
     Route: 065
     Dates: start: 20200304, end: 20200304
  43. CHLORPHENIRAMINE MALEATE [Concomitant]
     Active Substance: CHLORPHENIRAMINE MALEATE
     Route: 065
     Dates: start: 20200325, end: 20200325
  44. CHLORPHENIRAMINE MALEATE [Concomitant]
     Active Substance: CHLORPHENIRAMINE MALEATE
     Route: 065
     Dates: start: 20220204
  45. CHLORPHENIRAMINE MALEATE [Concomitant]
     Active Substance: CHLORPHENIRAMINE MALEATE
     Route: 065
     Dates: start: 20200304, end: 20200325
  46. ONDANSETRON [Concomitant]
     Active Substance: ONDANSETRON
     Indication: Premedication
     Route: 065
     Dates: start: 20200212, end: 20200212
  47. RANITIDINE [Concomitant]
     Active Substance: RANITIDINE
     Indication: Premedication
     Route: 065
     Dates: start: 20200304, end: 20200304
  48. RANITIDINE [Concomitant]
     Active Substance: RANITIDINE
     Route: 065
     Dates: start: 20200325, end: 20200325
  49. RANITIDINE [Concomitant]
     Active Substance: RANITIDINE
     Route: 065
     Dates: start: 20200304, end: 20200325
  50. PROTEIN SHAKE [Concomitant]
     Indication: Product used for unknown indication
     Dosage: UNKNONW
     Route: 065
     Dates: start: 20200302
  51. PREDNISOLONE [Concomitant]
     Active Substance: PREDNISOLONE
     Indication: Product used for unknown indication
     Route: 065
     Dates: start: 20200921, end: 20200925
  52. PREDNISOLONE [Concomitant]
     Active Substance: PREDNISOLONE
     Indication: Hepatic failure
     Route: 065
     Dates: start: 20200926, end: 20201005
  53. PREDNISOLONE [Concomitant]
     Active Substance: PREDNISOLONE
     Route: 065
     Dates: start: 20200325, end: 20200325
  54. PREDNISOLONE [Concomitant]
     Active Substance: PREDNISOLONE
     Route: 065
     Dates: start: 20200204
  55. PREDNISOLONE [Concomitant]
     Active Substance: PREDNISOLONE
     Route: 065
     Dates: start: 20200921, end: 20201005
  56. MORPHINE [Concomitant]
     Active Substance: MORPHINE
     Indication: Pain in extremity
     Dosage: UNKNOWN
     Route: 065
     Dates: start: 20200829
  57. MORPHINE [Concomitant]
     Active Substance: MORPHINE
     Dosage: UNKNOWN
     Route: 065
     Dates: start: 20200829
  58. CYCLIZINE [Concomitant]
     Active Substance: CYCLIZINE
     Indication: Nausea
     Dosage: UNKNOWN
     Route: 065
     Dates: start: 20200811
  59. CYCLIZINE [Concomitant]
     Active Substance: CYCLIZINE
     Dosage: UNKNOWN
     Route: 065
     Dates: start: 20190524
  60. CYCLIZINE [Concomitant]
     Active Substance: CYCLIZINE
     Dosage: UNKNOWN
     Route: 065
     Dates: start: 20190524
  61. DEXAMETHASONE [Concomitant]
     Active Substance: DEXAMETHASONE
     Indication: Nausea
     Route: 065
     Dates: start: 20200304, end: 20200304
  62. DEXAMETHASONE [Concomitant]
     Active Substance: DEXAMETHASONE
     Indication: Decreased appetite
     Route: 065
     Dates: start: 20200325, end: 20200325
  63. DEXAMETHASONE [Concomitant]
     Active Substance: DEXAMETHASONE
     Route: 065
     Dates: start: 20200504, end: 20200504
  64. DEXAMETHASONE [Concomitant]
     Active Substance: DEXAMETHASONE
     Route: 065
     Dates: start: 20200212, end: 20200212
  65. DEXAMETHASONE [Concomitant]
     Active Substance: DEXAMETHASONE
     Route: 065
     Dates: start: 20200304, end: 20200304
  66. DEXAMETHASONE [Concomitant]
     Active Substance: DEXAMETHASONE
     Route: 065
     Dates: start: 20200212, end: 20200225
  67. LOPERAMIDE [Concomitant]
     Active Substance: LOPERAMIDE
     Indication: Diarrhoea
     Dosage: UNKNOWN
     Route: 065
     Dates: start: 20200601
  68. LOPERAMIDE [Concomitant]
     Active Substance: LOPERAMIDE
     Indication: Pain in extremity
  69. METOCLOPRAMIDE [Concomitant]
     Active Substance: METOCLOPRAMIDE
     Indication: Vomiting
     Dosage: UNKNOWN
     Route: 030
     Dates: start: 20200511, end: 20200511
  70. FAMOTIDINE [Concomitant]
     Active Substance: FAMOTIDINE
     Indication: Product used for unknown indication
     Route: 065
     Dates: start: 20200212, end: 20200212
  71. FAMOTIDINE [Concomitant]
     Active Substance: FAMOTIDINE
     Route: 065
     Dates: start: 20200212
  72. FAMOTIDINE [Concomitant]
     Active Substance: FAMOTIDINE
     Route: 065
     Dates: start: 20200212, end: 20200212
  73. DENOSUMAB [Concomitant]
     Active Substance: DENOSUMAB
     Indication: Bone pain
     Dosage: UNKNOWN
     Route: 065
     Dates: start: 20200803
  74. WHOLE BLOOD [Concomitant]
     Active Substance: WHOLE BLOOD
     Indication: Haemoglobin decreased
     Dosage: UNKNOWN
     Route: 065
     Dates: start: 20200428, end: 20200428

REACTIONS (18)
  - Malignant neoplasm progression [Unknown]
  - Hepatic failure [Unknown]
  - Ear pain [Not Recovered/Not Resolved]
  - Weight decreased [Recovered/Resolved]
  - Decreased appetite [Not Recovered/Not Resolved]
  - Blood magnesium decreased [Recovering/Resolving]
  - Nausea [Not Recovered/Not Resolved]
  - White blood cell count decreased [Recovered/Resolved]
  - Vomiting [Recovering/Resolving]
  - Haemoglobin decreased [Not Recovered/Not Resolved]
  - Diarrhoea [Unknown]
  - Platelet count decreased [Unknown]
  - Mucosal inflammation [Not Recovered/Not Resolved]
  - Fatigue [Not Recovered/Not Resolved]
  - Off label use [Unknown]
  - Anaemia [Recovered/Resolved]
  - Abdominal pain upper [Unknown]
  - Autoimmune haemolytic anaemia [Recovering/Resolving]

NARRATIVE: CASE EVENT DATE: 20200213
